FAERS Safety Report 17296169 (Version 4)
Quarter: 2021Q3

REPORT INFORMATION
  Report Type: Spontaneous
  Country: NL (occurrence: NL)
  Receive Date: 20200121
  Receipt Date: 20210720
  Transmission Date: 20211014
  Serious: Yes (Life-Threatening, Hospitalization, Other)
  Sender: FDA-Public Use
  Company Number: NL-SA-2020SA012810

PATIENT
  Age: 63 Year
  Sex: Female
  Weight: 71.3 kg

DRUGS (27)
  1. CALCIUM CARBONATE AND VITAMIN D [Concomitant]
     Active Substance: CALCIUM CARBONATE\VITAMIN D
     Dosage: 1DD1
  2. ITRACONAZOLE. [Concomitant]
     Active Substance: ITRACONAZOLE
     Dosage: 100 MG
  3. ASCAL [CARBASALATE CALCIUM] [Concomitant]
     Active Substance: CARBASPIRIN CALCIUM
     Dosage: 100MG 1DD1
  4. PREDNISONE. [Suspect]
     Active Substance: PREDNISONE
     Dosage: UNK (CAUTIOUSLY TAPERED)
  5. PREDNISONE. [Suspect]
     Active Substance: PREDNISONE
     Dosage: 22.5 MG, QD
  6. DUPIXENT [Suspect]
     Active Substance: DUPILUMAB
     Indication: ASTHMA
     Dosage: 300 MG
     Route: 058
     Dates: start: 20190826, end: 20191218
  7. DUPIXENT [Suspect]
     Active Substance: DUPILUMAB
     Indication: EOSINOPHILIC GRANULOMATOSIS WITH POLYANGIITIS
  8. PREDNISONE. [Suspect]
     Active Substance: PREDNISONE
     Indication: ASTHMA
     Dosage: 32.5 MG, QD (PRE?ANTI?IL?5 TREATMENT)
  9. CICLESONIDE [Concomitant]
     Active Substance: CICLESONIDE
     Dosage: 1DD INHALE 1 D
  10. INDACATEROL [Concomitant]
     Active Substance: INDACATEROL
     Dosage: 1DD
  11. TEMAZEPAM. [Concomitant]
     Active Substance: TEMAZEPAM
     Dosage: 10 MG
  12. PREDNISONE. [Suspect]
     Active Substance: PREDNISONE
     Dosage: 20 MG, QD
  13. OMEPRAZOLE. [Concomitant]
     Active Substance: OMEPRAZOLE
     Dosage: 1DD1
  14. VENTOLIN [Concomitant]
     Active Substance: ALBUTEROL SULFATE
     Dosage: AS NEEDED 4 INHALATIONS A DAY
  15. TRAMADOL. [Concomitant]
     Active Substance: TRAMADOL
     Dosage: 50 MG
  16. ASCAL [CARBASALATE CALCIUM] [Concomitant]
     Active Substance: CARBASPIRIN CALCIUM
     Dosage: FOR THE NEXT 21 DAYS 1DD
  17. PREDNISONE. [Suspect]
     Active Substance: PREDNISONE
     Dosage: 32.2 MG, QD
  18. PREDNISONE. [Suspect]
     Active Substance: PREDNISONE
     Dosage: 30 MG, QD
  19. FLUTICASONE. [Concomitant]
     Active Substance: FLUTICASONE
     Dosage: 1DROP EACH NOSTRIL
     Route: 045
  20. RISEDRONIC ACID [Concomitant]
     Active Substance: RISEDRONIC ACID
     Dosage: 1WD 35MG
  21. DUPIXENT [Suspect]
     Active Substance: DUPILUMAB
     Indication: NASAL POLYPS
     Dosage: UNK
     Dates: start: 20190911
  22. EZETIMIBE. [Concomitant]
     Active Substance: EZETIMIBE
     Indication: HYPERCHOLESTEROLAEMIA
     Dosage: 10 MG
     Route: 048
     Dates: start: 2016
  23. FOSTER [Concomitant]
     Active Substance: BECLOMETHASONE\FORMOTEROL
     Dosage: 2DD INHALE 1 D
  24. PANTOPRAZOLE [Concomitant]
     Active Substance: PANTOPRAZOLE
     Dosage: UNK
  25. PREDNISONE. [Suspect]
     Active Substance: PREDNISONE
     Dosage: 35 MG, QD
  26. MOMETASONE [Concomitant]
     Active Substance: MOMETASONE
     Dosage: 1DD 50 MCG IN BOTH NOSTRILS
     Route: 045
  27. CLOPIDOGREL [Concomitant]
     Active Substance: CLOPIDOGREL BISULFATE
     Dosage: UNK

REACTIONS (18)
  - Cerebrovascular accident [Recovering/Resolving]
  - Dysarthria [Recovering/Resolving]
  - Eosinophilia [Recovered/Resolved with Sequelae]
  - Hemiparesis [Unknown]
  - Hemiplegia [Recovering/Resolving]
  - Epistaxis [Unknown]
  - Facial asymmetry [Unknown]
  - Unintentional use for unapproved indication [Unknown]
  - Nervous system disorder [Recovered/Resolved with Sequelae]
  - Paraesthesia [Unknown]
  - Leukocytosis [Unknown]
  - Rebound effect [Unknown]
  - Speech disorder [Recovering/Resolving]
  - Lung consolidation [Unknown]
  - Lung infiltration [Recovered/Resolved with Sequelae]
  - Eosinophilic granulomatosis with polyangiitis [Recovered/Resolved with Sequelae]
  - Headache [Unknown]
  - Arteriosclerosis [Unknown]

NARRATIVE: CASE EVENT DATE: 20191231
